FAERS Safety Report 7935291 (Version 3)
Quarter: 2014Q1

REPORT INFORMATION
  Report Type: Report from Study
  Country: US (occurrence: US)
  Receive Date: 20110509
  Receipt Date: 20140326
  Transmission Date: 20141002
  Serious: Yes (Death, Hospitalization, Other)
  Sender: FDA-Public Use
  Company Number: US-BRISTOL-MYERS SQUIBB COMPANY-15644586

PATIENT
  Age: 34 Year
  Sex: Female

DRUGS (24)
  1. IPILIMUMAB [Suspect]
     Indication: MALIGNANT MELANOMA
     Dosage: 3MG/KG
     Route: 042
     Dates: start: 20110324
  2. DILANTIN [Concomitant]
     Dosage: LOADING DOSE 1GM
     Route: 042
     Dates: start: 20110327
  3. DECADRON [Concomitant]
     Route: 042
     Dates: start: 20110327
  4. LORAZEPAM [Concomitant]
     Indication: ANXIETY
     Route: 048
  5. MIRALAX [Concomitant]
     Route: 048
  6. DRONABINOL [Concomitant]
     Route: 048
  7. DIFLUCAN [Concomitant]
     Route: 048
  8. METOPROLOL [Concomitant]
     Route: 048
  9. DECADRON [Concomitant]
  10. ZOFRAN [Concomitant]
     Route: 060
  11. TYLENOL [Concomitant]
     Route: 048
  12. TYLENOL [Concomitant]
     Route: 048
  13. PHENYTOIN [Concomitant]
     Dosage: 3 TABLETS?ALSO 200MG
     Route: 048
  14. LORAZEPAM [Concomitant]
     Indication: CONVULSION
     Route: 060
  15. FENTANYL [Concomitant]
  16. AMLODIPINE [Concomitant]
     Route: 048
  17. ALPRAZOLAM [Concomitant]
     Indication: ANXIETY
     Route: 048
  18. PROCHLORPERAZINE [Concomitant]
     Route: 048
  19. INAPSINE [Concomitant]
     Dates: start: 20110512
  20. BENADRYL [Concomitant]
     Dates: start: 20110512
  21. KEPPRA [Concomitant]
  22. MARINOL [Concomitant]
  23. XANAX [Concomitant]
  24. COMPAZINE [Concomitant]

REACTIONS (3)
  - Malignant neoplasm progression [Fatal]
  - Vomiting [Unknown]
  - Convulsion [Recovered/Resolved]
